FAERS Safety Report 6547377-9 (Version None)
Quarter: 2010Q1

REPORT INFORMATION
  Report Type: 
  Country: None (occurrence: None)
  Receive Date: 20100122
  Receipt Date: 20100114
  Transmission Date: 20100710
  Serious: Yes (Hospitalization)
  Sender: FDA-Public Use
  Company Number: DE-AMGEN-US383127

PATIENT
  Age: 58 Year
  Sex: Female

DRUGS (4)
  1. ENBREL [Suspect]
     Indication: RHEUMATOID ARTHRITIS
     Route: 058
     Dates: start: 20060605, end: 20090101
  2. ENBREL [Suspect]
     Route: 058
     Dates: start: 20090101
  3. BISOPROLOL FUMARATE [Concomitant]
     Dosage: UNKNOWN
  4. THIAMAZOLE [Concomitant]
     Dosage: 20MG (FREQUENCY UNKNOWN)

REACTIONS (2)
  - FLUID RETENTION [None]
  - PULMONARY OEDEMA [None]
